FAERS Safety Report 22650472 (Version 5)
Quarter: 2025Q4

REPORT INFORMATION
  Report Type: Spontaneous
  Country: US (occurrence: US)
  Receive Date: 20230628
  Receipt Date: 20251006
  Transmission Date: 20260118
  Serious: Yes (Hospitalization)
  Sender: PFIZER
  Company Number: US-PFIZER INC-202200384125

PATIENT
  Age: 77 Year
  Sex: Male
  Weight: 92.532 kg

DRUGS (1)
  1. VYNDAMAX [Suspect]
     Active Substance: TAFAMIDIS
     Indication: Amyloidosis
     Dosage: ONE 61 MG CAPSULE ONCE DAILY
     Route: 048

REACTIONS (5)
  - Gout [Unknown]
  - COVID-19 [Unknown]
  - Pharyngitis streptococcal [Unknown]
  - Visual impairment [Not Recovered/Not Resolved]
  - Confusional state [Unknown]
